FAERS Safety Report 9689768 (Version 2)
Quarter: 2013Q4

REPORT INFORMATION
  Report Type: Spontaneous
  Country: FR (occurrence: FR)
  Receive Date: 20131115
  Receipt Date: 20131126
  Transmission Date: 20140711
  Serious: Yes (Hospitalization)
  Sender: FDA-Public Use
  Company Number: FR-JNJFOC-20131107117

PATIENT
  Age: 20 Year
  Sex: Male

DRUGS (2)
  1. REMICADE [Suspect]
     Indication: COLITIS ULCERATIVE
     Route: 042
     Dates: start: 201211
  2. REMICADE [Suspect]
     Indication: COLITIS ULCERATIVE
     Dosage: LAST INFLIXIMAB INFUSION
     Route: 042
     Dates: start: 20121210

REACTIONS (4)
  - Herpes virus infection [Recovered/Resolved]
  - Laryngitis [Recovered/Resolved]
  - Uveitis [Recovered/Resolved]
  - Mouth ulceration [Recovered/Resolved]
